FAERS Safety Report 14218425 (Version 1)
Quarter: 2017Q4

REPORT INFORMATION
  Report Type: Spontaneous
  Country: AU (occurrence: AU)
  Receive Date: 20171123
  Receipt Date: 20171123
  Transmission Date: 20180321
  Serious: Yes (Other)
  Sender: FDA-Public Use
  Company Number: AU-AMGEN-AUSSP2017173608

PATIENT
  Age: 78 Year
  Sex: Female

DRUGS (2)
  1. THYROXINE [Concomitant]
     Active Substance: LEVOTHYROXINE
  2. PROLIA [Suspect]
     Active Substance: DENOSUMAB
     Indication: OSTEOPOROSIS
     Dosage: UNK UNK, Q6MO
     Route: 065
     Dates: start: 201609

REACTIONS (6)
  - Eye disorder [Not Recovered/Not Resolved]
  - Tooth disorder [Unknown]
  - Injection site pain [Unknown]
  - Toothache [Unknown]
  - Loose tooth [Unknown]
  - Dental restoration failure [Unknown]

NARRATIVE: CASE EVENT DATE: 20171016
